FAERS Safety Report 11868778 (Version 1)
Quarter: 2015Q4

REPORT INFORMATION
  Report Type: Spontaneous
  Country: SE (occurrence: SE)
  Receive Date: 20151225
  Receipt Date: 20151225
  Transmission Date: 20160305
  Serious: Yes (Other)
  Sender: FDA-Public Use
  Company Number: SE-ABBVIE-15K-150-1524827-00

PATIENT
  Age: 37 Year
  Sex: Female

DRUGS (2)
  1. STELARA [Suspect]
     Active Substance: USTEKINUMAB
     Indication: PUSTULAR PSORIASIS
     Route: 058
     Dates: start: 20150605
  2. HUMIRA [Suspect]
     Active Substance: ADALIMUMAB
     Indication: PUSTULAR PSORIASIS
     Route: 058
     Dates: start: 20140519, end: 20150604

REACTIONS (11)
  - Dry skin [Not Recovered/Not Resolved]
  - Blood thyroid stimulating hormone decreased [Unknown]
  - Tri-iodothyronine increased [Unknown]
  - Dysphagia [Not Recovered/Not Resolved]
  - Chills [Not Recovered/Not Resolved]
  - Fatigue [Not Recovered/Not Resolved]
  - Hyperhidrosis [Not Recovered/Not Resolved]
  - Basedow^s disease [Not Recovered/Not Resolved]
  - Weight control [Not Recovered/Not Resolved]
  - Thyroxine free increased [Unknown]
  - Palpitations [Not Recovered/Not Resolved]

NARRATIVE: CASE EVENT DATE: 2015
